FAERS Safety Report 20557658 (Version 3)
Quarter: 2022Q2

REPORT INFORMATION
  Report Type: Other
  Country: US (occurrence: None)
  Receive Date: 20220307
  Receipt Date: 20220624
  Transmission Date: 20220720
  Serious: Yes (Hospitalization)
  Sender: FDA-Public Use
  Company Number: US-ROCHE-3039166

PATIENT
  Sex: Female

DRUGS (1)
  1. OCREVUS [Suspect]
     Active Substance: OCRELIZUMAB
     Indication: Relapsing-remitting multiple sclerosis
     Dosage: DOT: 21/JUL/2021, 28/JAN/2021, 14/JUL/2020, 28/JUL/2020
     Route: 042
     Dates: start: 20200714

REACTIONS (3)
  - COVID-19 pneumonia [Recovered/Resolved]
  - White blood cell count abnormal [Not Recovered/Not Resolved]
  - Haemoglobin decreased [Unknown]
